FAERS Safety Report 5324377-8 (Version None)
Quarter: 2007Q2

REPORT INFORMATION
  Report Type: 
  Country: None (occurrence: None)
  Receive Date: 20070514
  Receipt Date: 20070504
  Transmission Date: 20071010
  Serious: Yes (Life-Threatening, Hospitalization)
  Sender: FDA-Public Use
  Company Number: FI-PFIZER INC-2007034069

PATIENT
  Sex: Male

DRUGS (8)
  1. LIPITOR [Suspect]
     Indication: HYPERLIPIDAEMIA
     Route: 048
  2. LIPANTHYL [Interacting]
     Indication: TYPE V HYPERLIPIDAEMIA
     Route: 048
  3. PROTAPHAN [Concomitant]
     Route: 058
  4. ACTRAPID [Concomitant]
     Route: 058
  5. RAMIPRIL [Concomitant]
  6. ATENBLOCK [Concomitant]
     Route: 048
  7. NITROSID - SLOW RELEASE [Concomitant]
  8. PRIMASPAN [Concomitant]
     Route: 048

REACTIONS (3)
  - DRUG INTERACTION [None]
  - OVERDOSE [None]
  - RHABDOMYOLYSIS [None]
